FAERS Safety Report 8021983-7 (Version None)
Quarter: 2011Q4

REPORT INFORMATION
  Report Type: 
  Country: None (occurrence: None)
  Receive Date: 20111123
  Receipt Date: 20110928
  Transmission Date: 20120403
  Serious: No
  Sender: FDA-Public Use
  Company Number: 336121

PATIENT
  Sex: Male

DRUGS (1)
  1. VICTOZA [Suspect]
     Indication: TYPE 2 DIABETES MELLITUS
     Dosage: UNK, SUBCUTANEOUS
     Route: 058
     Dates: start: 20101201

REACTIONS (2)
  - WEIGHT DECREASED [None]
  - INJECTION SITE REACTION [None]
